FAERS Safety Report 20562635 (Version 1)
Quarter: 2022Q1

REPORT INFORMATION
  Report Type: Spontaneous
  Country: US (occurrence: US)
  Receive Date: 20220307
  Receipt Date: 20220307
  Transmission Date: 20220424
  Serious: No
  Sender: FDA-Public Use
  Company Number: US-ORGANON-O2203USA000415

PATIENT
  Sex: Female

DRUGS (1)
  1. NEXPLANON [Suspect]
     Active Substance: ETONOGESTREL
     Indication: Contraception
     Dosage: 1 ROD OF 68 MG, RIGHT ARM
     Route: 059
     Dates: start: 201903

REACTIONS (5)
  - Pregnancy test false positive [Not Recovered/Not Resolved]
  - Implant site pain [Not Recovered/Not Resolved]
  - Breast pain [Not Recovered/Not Resolved]
  - Incorrect product administration duration [Unknown]
  - Product prescribing error [Unknown]

NARRATIVE: CASE EVENT DATE: 20220301
